FAERS Safety Report 9523582 (Version 4)
Quarter: 2014Q2

REPORT INFORMATION
  Report Type: Report from Study
  Country: FR (occurrence: FR)
  Receive Date: 20130913
  Receipt Date: 20140618
  Transmission Date: 20141212
  Serious: Yes (Hospitalization)
  Sender: FDA-Public Use
  Company Number: FR-B.I. PHARMACEUTICALS,INC./RIDGEFIELD-2013-BI-26252BI

PATIENT
  Age: 55 Year
  Sex: Male

DRUGS (7)
  1. BIBW 2992 [Suspect]
     Indication: SQUAMOUS CELL CARCINOMA OF LUNG
     Dosage: 40 MG
     Route: 048
     Dates: start: 20130809
  2. ZALDIAR [Concomitant]
     Indication: BONE LESION
     Dosage: STRENGTH AND DAILY DOSE: 37.5/325 MG IF NEEDED
     Route: 048
     Dates: start: 201305
  3. SPIFEN [Concomitant]
     Indication: BONE PAIN
     Dosage: 400 MG
     Route: 048
     Dates: start: 20130419
  4. XGEVA [Concomitant]
     Indication: PROPHYLAXIS
     Dosage: STRENGTH AND DAILY DOSE: 120 NG (1 INJECTION/ MONTH)
     Route: 058
     Dates: start: 20130703
  5. CALCIUM [Concomitant]
     Indication: PROPHYLAXIS
     Dosage: 500 MG
     Route: 048
     Dates: start: 20130708
  6. VITAMIN D [Concomitant]
     Indication: PROPHYLAXIS
     Dosage: 4000 U
     Route: 048
     Dates: start: 20130705
  7. PRINPERAN [Concomitant]
     Indication: NAUSEA
     Dosage: 3 MG
     Route: 048
     Dates: start: 201308

REACTIONS (4)
  - Pain [Recovered/Resolved with Sequelae]
  - Nausea [Not Recovered/Not Resolved]
  - Nausea [Not Recovered/Not Resolved]
  - Diarrhoea [Not Recovered/Not Resolved]
